FAERS Safety Report 21722300 (Version 1)
Quarter: 2022Q4

REPORT INFORMATION
  Report Type: Spontaneous
  Country: US (occurrence: US)
  Receive Date: 20221213
  Receipt Date: 20221213
  Transmission Date: 20230113
  Serious: No
  Sender: FDA-Public Use
  Company Number: US-PFIZER INC-202201362354

PATIENT
  Age: 64 Year
  Sex: Female

DRUGS (17)
  1. XELJANZ [Suspect]
     Active Substance: TOFACITINIB CITRATE
     Dosage: 5 MG, DAILY (5 MG ORAL DAILY)
     Route: 048
     Dates: start: 2018
  2. XELJANZ [Suspect]
     Active Substance: TOFACITINIB CITRATE
     Dosage: 5 MG, DAILY (5 MG ORAL DAILY)
     Route: 048
     Dates: start: 202211
  3. XELJANZ XR [Suspect]
     Active Substance: TOFACITINIB CITRATE
     Dosage: 11 MG, ALTERNATE DAY
  4. NP THYROID [Concomitant]
     Active Substance: LEVOTHYROXINE\LIOTHYRONINE
     Dosage: UNK
  5. PRASTERONE [Concomitant]
     Active Substance: PRASTERONE
     Dosage: UNK
  6. DIGESTIVE PROBIOTICS ADVANCED [Concomitant]
     Dosage: UNK
  7. FISH OIL [Concomitant]
     Active Substance: FISH OIL
     Dosage: UNK
  8. NALTREXONE [Concomitant]
     Active Substance: NALTREXONE
     Dosage: UNK
  9. OSTERA [ACHYRANTHES BIDENTATA ROOT;ANGELICA GIGAS ROOT;CARTHAMUS TINCT [Concomitant]
     Dosage: UNK
  10. CALCIUM [Concomitant]
     Active Substance: CALCIUM
     Dosage: UNK
  11. PREGNENOLONE [Concomitant]
     Active Substance: PREGNENOLONE
     Dosage: UNK
  12. BIFIDOBACTERIUM ANIMALIS LACTIS [Concomitant]
     Active Substance: BIFIDOBACTERIUM ANIMALIS LACTIS
     Dosage: UNK
  13. RETINOL [Concomitant]
     Active Substance: RETINOL
     Dosage: UNK
  14. VITAMIN C [Concomitant]
     Active Substance: ASCORBIC ACID
     Dosage: UNK
  15. VITAMIN D3 [Concomitant]
     Active Substance: CHOLECALCIFEROL
     Dosage: UNK
  16. VITAMIN K [CALCIUM PHOSPHATE DIBASIC;PHYTOMENADIONE] [Concomitant]
     Dosage: UNK
  17. ZINC [Concomitant]
     Active Substance: ZINC
     Dosage: UNK

REACTIONS (1)
  - Blood pressure abnormal [Not Recovered/Not Resolved]

NARRATIVE: CASE EVENT DATE: 20221101
